FAERS Safety Report 4825559-1 (Version None)
Quarter: 2005Q4

REPORT INFORMATION
  Report Type: 
  Country: None (occurrence: None)
  Receive Date: 20051111
  Receipt Date: 20050907
  Transmission Date: 20060501
  Serious: No
  Sender: FDA-Public Use
  Company Number: US-GLAXOSMITHKLINE-A0573320A

PATIENT
  Sex: Male

DRUGS (5)
  1. AVODART [Suspect]
     Indication: BENIGN PROSTATIC HYPERPLASIA
     Route: 048
     Dates: start: 20050907
  2. LEVAQUIN [Concomitant]
  3. NORVASC [Concomitant]
  4. TENORMIN [Concomitant]
  5. GLUCOTROL [Concomitant]

REACTIONS (2)
  - DIZZINESS [None]
  - ERUCTATION [None]
